FAERS Safety Report 7448154-7 (Version None)
Quarter: 2011Q2

REPORT INFORMATION
  Report Type: 
  Country: None (occurrence: None)
  Receive Date: 20110429
  Receipt Date: 20101130
  Transmission Date: 20111010
  Serious: No
  Sender: FDA-Public Use
  Company Number: US-ASTRAZENECA-2009SE09398

PATIENT
  Sex: Female

DRUGS (2)
  1. NEXIUM [Suspect]
     Route: 048
     Dates: start: 20090801
  2. NEXIUM [Suspect]
     Route: 048
     Dates: end: 20090801

REACTIONS (7)
  - HEADACHE [None]
  - DIARRHOEA [None]
  - DIZZINESS [None]
  - INSOMNIA [None]
  - PAIN IN EXTREMITY [None]
  - NAUSEA [None]
  - ABDOMINAL PAIN UPPER [None]
